FAERS Safety Report 10033233 (Version 1)
Quarter: 2014Q1

REPORT INFORMATION
  Report Type: Spontaneous
  Country: TR (occurrence: TR)
  Receive Date: 20140324
  Receipt Date: 20140324
  Transmission Date: 20141002
  Serious: Yes (Other)
  Sender: FDA-Public Use
  Company Number: PHHY2014TR031781

PATIENT
  Age: 15 Year
  Sex: Male

DRUGS (3)
  1. VALPROIC ACID [Suspect]
     Indication: CONVULSION
     Dosage: 33 MG/KG, UNK
     Route: 042
  2. LEVETIRACETAM [Suspect]
     Indication: CONVULSION
     Dosage: 44 MG/KG, UNK
  3. ANTIBIOTICS [Concomitant]
     Route: 042

REACTIONS (6)
  - Hyperammonaemia [Recovered/Resolved]
  - Metabolic encephalopathy [Unknown]
  - Altered state of consciousness [Unknown]
  - Confusional state [Unknown]
  - Lethargy [Unknown]
  - Convulsion [Unknown]
